FAERS Safety Report 4589783-8 (Version None)
Quarter: 2005Q1

REPORT INFORMATION
  Report Type: 
  Country: None (occurrence: None)
  Receive Date: 20050223
  Receipt Date: 20050211
  Transmission Date: 20050727
  Serious: Yes (Death, Life-Threatening, Disabling, Other)
  Sender: FDA-Public Use
  Company Number: US-GLAXOSMITHKLINE-A0545503A

PATIENT
  Sex: Female

DRUGS (3)
  1. SEREVENT [Suspect]
     Indication: ASTHMA
     Route: 055
  2. PREDNISONE [Concomitant]
  3. ALBUTEROL [Concomitant]

REACTIONS (1)
  - ASTHMA [None]
